FAERS Safety Report 13431221 (Version 1)
Quarter: 2017Q2

REPORT INFORMATION
  Report Type: Spontaneous
  Country: PE (occurrence: PE)
  Receive Date: 20170412
  Receipt Date: 20170412
  Transmission Date: 20170830
  Serious: Yes (Other)
  Sender: FDA-Public Use
  Company Number: PE-PFIZER INC-2017158041

PATIENT
  Age: 46 Year
  Sex: Male

DRUGS (1)
  1. LYRICA [Suspect]
     Active Substance: PREGABALIN
     Dosage: 600 MG (2 CAPSULES OF 300 MG), DAILY

REACTIONS (3)
  - Sensory loss [Unknown]
  - Mobility decreased [Unknown]
  - Diabetes mellitus [Unknown]
